FAERS Safety Report 6712860-X (Version None)
Quarter: 2010Q2

REPORT INFORMATION
  Report Type: 
  Country: None (occurrence: None)
  Receive Date: 20100506
  Receipt Date: 20100430
  Transmission Date: 20101027
  Serious: Yes (Death, Life-Threatening, Hospitalization, Disabling)
  Sender: FDA-Public Use
  Company Number: RO-BRISTOL-MYERS SQUIBB COMPANY-14649123

PATIENT
  Age: 52 Year
  Sex: Male
  Weight: 68 kg

DRUGS (3)
  1. CETUXIMAB [Suspect]
     Indication: GASTROOESOPHAGEAL CANCER
     Dosage: STRENGTH: 5MG/ML
     Route: 042
     Dates: start: 20090325, end: 20090422
  2. CISPLATIN [Suspect]
     Indication: GASTROOESOPHAGEAL CANCER
     Dosage: TAKEN ON DAY 1 OF CYCLE.
     Route: 042
     Dates: start: 20090325, end: 20090415
  3. XELODA [Suspect]
     Indication: GASTROOESOPHAGEAL CANCER
     Dosage: TAKEN ON DAY 1-15.
     Route: 048
     Dates: start: 20090325, end: 20090423

REACTIONS (2)
  - CYTOLYTIC HEPATITIS [None]
  - SEPSIS [None]
